FAERS Safety Report 8542906-8 (Version None)
Quarter: 2012Q3

REPORT INFORMATION
  Report Type: 
  Country: None (occurrence: None)
  Receive Date: 20120727
  Receipt Date: 20120705
  Transmission Date: 20120928
  Serious: Yes (Other)
  Sender: FDA-Public Use
  Company Number: CH-009507513-1207CHE000066

PATIENT

DRUGS (1)
  1. REMERON [Suspect]
     Dosage: 14 DF, ONCE
     Route: 048
     Dates: start: 20120608, end: 20120608

REACTIONS (2)
  - AGITATION [None]
  - SUICIDE ATTEMPT [None]
